FAERS Safety Report 9436493 (Version 1)
Quarter: 2013Q3

REPORT INFORMATION
  Report Type: Report from Study
  Country: US (occurrence: US)
  Receive Date: 20130802
  Receipt Date: 20130802
  Transmission Date: 20140515
  Serious: Yes (Hospitalization)
  Sender: FDA-Public Use
  Company Number: US-ROCHE-800370

PATIENT
  Age: 72 Year
  Sex: Male
  Weight: 103 kg

DRUGS (4)
  1. VISMODEGIB [Suspect]
     Indication: SMALL CELL LUNG CANCER
     Dosage: LAST DOSE PRIOR TO SAE 25/JUL/2011
     Route: 048
  2. CISPLATIN [Suspect]
     Indication: SMALL CELL LUNG CANCER
     Dosage: IV OVER 2 HRS ON DAY 1-3, TOTAL DOSE: 174 MG, LAST DOSE PRIOR TO EVENT 19/JUL/2011
     Route: 042
  3. ETOPOSIDE [Suspect]
     Indication: SMALL CELL LUNG CANCER
     Dosage: IV OVER 2 HRS ON DAYS 1-3, TOTAL DOSE: 696 MG, LAST DOSE PRIOR TO SAE 21/JUL/2011
     Route: 042
  4. COUMADIN [Concomitant]
     Route: 065

REACTIONS (4)
  - Neutrophil count decreased [Not Recovered/Not Resolved]
  - White blood cell count decreased [Unknown]
  - Platelet count decreased [Not Recovered/Not Resolved]
  - Atrial fibrillation [Not Recovered/Not Resolved]
